FAERS Safety Report 16844502 (Version 1)
Quarter: 2019Q3

REPORT INFORMATION
  Report Type: Spontaneous
  Country: FR (occurrence: FR)
  Receive Date: 20190924
  Receipt Date: 20190924
  Transmission Date: 20191005
  Serious: Yes (Hospitalization)
  Sender: FDA-Public Use
  Company Number: FR-ACCORD-155541

PATIENT
  Age: 67 Year
  Sex: Male
  Weight: 77 kg

DRUGS (6)
  1. CARBOPLATINE ACCORD [Suspect]
     Active Substance: CARBOPLATIN
     Indication: SQUAMOUS CELL CARCINOMA
     Dosage: STRENGTH: 10 MG/ML
     Route: 042
     Dates: start: 20190710, end: 20190710
  2. CIFLOX [Suspect]
     Active Substance: CIPROFLOXACIN
     Indication: LUNG DISORDER
     Dosage: STRENGTH: 400 MG/200 ML, SOLUTION FOR INJECTION FOR INFUSION (IV)
     Route: 042
     Dates: start: 20190722, end: 20190724
  3. OPDIVO [Suspect]
     Active Substance: NIVOLUMAB
     Indication: SQUAMOUS CELL CARCINOMA
     Dosage: STRENGTH: 10 MG/ML, SOLUTION TO BE DILUTED FOR INFUSION
     Route: 042
     Dates: start: 20180725, end: 20190603
  4. NAVELBINE [Suspect]
     Active Substance: VINORELBINE TARTRATE
     Indication: SQUAMOUS CELL CARCINOMA
     Dosage: STRENGTH: 50 MG/5 ML, SOLUTION FOR INJECTION IN VIAL
     Route: 042
     Dates: start: 20190710, end: 20190717
  5. AUGMENTIN [Suspect]
     Active Substance: AMOXICILLIN\CLAVULANATE POTASSIUM
     Indication: LUNG DISORDER
     Route: 042
     Dates: start: 20190722, end: 20190724
  6. GENTAMICINE PANPHARMA [Suspect]
     Active Substance: GENTAMICIN
     Indication: LUNG DISORDER
     Dosage: STRENGTH: 80 MG
     Route: 042
     Dates: start: 20190722, end: 20190724

REACTIONS (1)
  - Acute kidney injury [Recovering/Resolving]

NARRATIVE: CASE EVENT DATE: 20190722
